FAERS Safety Report 6999432-7 (Version None)
Quarter: 2010Q3

REPORT INFORMATION
  Report Type: 
  Country: None (occurrence: None)
  Receive Date: 20100920
  Receipt Date: 20100907
  Transmission Date: 20110219
  Serious: Yes (Hospitalization, Other)
  Sender: FDA-Public Use
  Company Number: PHHY2010CO59749

PATIENT
  Sex: Female

DRUGS (3)
  1. MYFORTIC [Suspect]
     Indication: PROPHYLAXIS AGAINST TRANSPLANT REJECTION
     Dosage: 360 MG
     Route: 048
     Dates: start: 20090801
  2. SIROLIMUS [Concomitant]
     Dosage: UNK
     Dates: end: 20100824
  3. TACROLIMUS [Concomitant]
     Dosage: UNK
     Dates: start: 20100824

REACTIONS (4)
  - ASTHENIA [None]
  - DIARRHOEA [None]
  - MALAISE [None]
  - STOMATITIS [None]
